FAERS Safety Report 23787717 (Version 1)
Quarter: 2024Q2

REPORT INFORMATION
  Report Type: Spontaneous
  Country: CA (occurrence: CA)
  Receive Date: 20240426
  Receipt Date: 20240426
  Transmission Date: 20240715
  Serious: Yes (Other)
  Sender: FDA-Public Use
  Company Number: CA-PFIZER INC-202400093529

PATIENT
  Age: 70 Year
  Sex: Male

DRUGS (17)
  1. VYNDAMAX [Suspect]
     Active Substance: TAFAMIDIS
     Indication: Cardiac amyloidosis
     Dosage: 61 MG, 1X/DAY
     Route: 048
     Dates: start: 20231215
  2. APIXABAN [Concomitant]
     Active Substance: APIXABAN
     Dosage: 5 MG
     Route: 048
  3. CHOLECALCIFEROL [Concomitant]
     Active Substance: CHOLECALCIFEROL
     Dosage: 25 UG (1000 UNIT)
     Route: 048
  4. COLCHICINE [Concomitant]
     Active Substance: COLCHICINE
     Dosage: 0.6 MG, AS NEEDED
     Route: 048
  5. ROSUVASTATIN CALCIUM [Concomitant]
     Active Substance: ROSUVASTATIN CALCIUM
     Dosage: 10 MG, 1X/DAY X 1 MTH30
  6. CYANOCOBALAMIN [Concomitant]
     Active Substance: CYANOCOBALAMIN
     Dosage: 1000 UG/ML
  7. FERROUS FUMARATE [Concomitant]
     Active Substance: FERROUS FUMARATE
     Dosage: 300 MG, 1X/DAY X 1 MTH30
     Route: 048
  8. FUROSEMIDE [Concomitant]
     Active Substance: FUROSEMIDE
     Dosage: 40 MG, 2X/DAY (3 TABLET(S) TWO TIMES DAILY X 3 MTH3)
  9. FUROSEMIDE [Concomitant]
     Active Substance: FUROSEMIDE
     Dosage: 120 MG, 2X/DAY ((WAS120/80 WITH 40 MG PRN DOSE BASED ON WEIGHT)]
  10. INSULIN NOS [Concomitant]
     Active Substance: INSULIN NOS
     Dosage: PEN (ML)[10 UNITS QHS]
  11. INSULIN GLARGINE [Concomitant]
     Active Substance: INSULIN GLARGINE
     Dosage: 100 UNIT/ML (3 ML)
     Route: 058
  12. IRON [Concomitant]
     Active Substance: IRON
     Dosage: 100 MG
  13. PANTOPRAZOLE SODIUM [Concomitant]
     Active Substance: PANTOPRAZOLE SODIUM
     Dosage: 40 MG, 1X/DAY X 1 MTH30
  14. METOLAZONE [Concomitant]
     Active Substance: METOLAZONE
     Dosage: 2.5 MG, 1 TABLET(S) THREE TIMES/WEEK X 3 MTH30
     Route: 048
  15. PREGABALIN [Concomitant]
     Active Substance: PREGABALIN
     Dosage: 300 MG, 1X/DAY (1-2 CAPSULE(S) ONCE DAILY AS NEEDED X 1 MTH30)
     Route: 048
  16. SPIRONOLACTONE [Concomitant]
     Active Substance: SPIRONOLACTONE
     Dosage: 25 MG, 1X/DAY X 1 MTH30
     Route: 048
  17. ZOPICLONE [Concomitant]
     Active Substance: ZOPICLONE
     Dosage: 5 MG, 2X/DAY
     Route: 048

REACTIONS (16)
  - Hypokalaemia [Unknown]
  - Ascites [Unknown]
  - Cataract [Unknown]
  - Nausea [Recovered/Resolved]
  - Decreased appetite [Recovered/Resolved]
  - Nasal congestion [Unknown]
  - Balance disorder [Unknown]
  - Sciatica [Unknown]
  - Hypotension [Unknown]
  - Heart rate irregular [Unknown]
  - Arthralgia [Unknown]
  - Blood creatinine increased [Unknown]
  - Brain natriuretic peptide increased [Unknown]
  - Hypervolaemia [Unknown]
  - Abdominal discomfort [Recovered/Resolved]
  - Constipation [Unknown]

NARRATIVE: CASE EVENT DATE: 20240111
